FAERS Safety Report 6222839-2 (Version None)
Quarter: 2009Q2

REPORT INFORMATION
  Report Type: 
  Country: None (occurrence: None)
  Receive Date: 20090611
  Receipt Date: 20090420
  Transmission Date: 20091009
  Serious: Yes (Other)
  Sender: FDA-Public Use
  Company Number: B0570806A

PATIENT
  Age: 27 Year
  Sex: Male
  Weight: 93 kg

DRUGS (14)
  1. PAXIL [Suspect]
     Indication: SOMATOFORM DISORDER
     Dosage: 40MG PER DAY
     Route: 048
     Dates: start: 20090316, end: 20090411
  2. REMERON [Concomitant]
     Indication: SOMATOFORM DISORDER
     Dosage: 30MG PER DAY
     Route: 048
     Dates: start: 20090316
  3. AETHACIZINUM [Concomitant]
     Route: 048
  4. HALOPERIDOL [Concomitant]
  5. ZYPREXA [Concomitant]
  6. METAZEPAM [Concomitant]
  7. AMITRIPTLINE HYDROCHLORIDE TAB [Concomitant]
  8. ETHOPROPAZINE [Concomitant]
     Dosage: 7.5MG PER DAY
  9. DIAZEPAM [Concomitant]
     Route: 030
  10. CYCLODOL [Concomitant]
     Dosage: 2MG PER DAY
  11. CHLORPROTHIXEN [Concomitant]
     Dosage: 30MG PER DAY
  12. ATARAX [Concomitant]
     Dosage: 12.5MG THREE TIMES PER DAY
  13. VIT B6 [Concomitant]
     Indication: HEADACHE
  14. FLUANXOL [Concomitant]
     Dosage: .5MG TWICE PER DAY

REACTIONS (21)
  - AFFECT LABILITY [None]
  - AKATHISIA [None]
  - ANXIETY [None]
  - BLOOD PRESSURE INCREASED [None]
  - BODY TEMPERATURE INCREASED [None]
  - BURNING SENSATION [None]
  - CHILLS [None]
  - CONVULSION [None]
  - DISCOMFORT [None]
  - DIZZINESS [None]
  - HEADACHE [None]
  - HYPERHIDROSIS [None]
  - HYPERTHERMIA [None]
  - INSOMNIA [None]
  - MOOD SWINGS [None]
  - MYDRIASIS [None]
  - PERIPHERAL COLDNESS [None]
  - POOR QUALITY SLEEP [None]
  - SEROTONIN SYNDROME [None]
  - SLEEP DISORDER [None]
  - TENSION [None]
